FAERS Safety Report 21217092 (Version 1)
Quarter: 2022Q3

REPORT INFORMATION
  Report Type: Other
  Country: US (occurrence: None)
  Receive Date: 20220816
  Receipt Date: 20220816
  Transmission Date: 20221027
  Serious: No
  Sender: FDA-Public Use
  Company Number: US-ROCHE-3033203

PATIENT
  Age: 37 Year
  Sex: Female

DRUGS (4)
  1. ALECTINIB [Suspect]
     Active Substance: ALECTINIB
     Indication: Non-small cell lung cancer stage IV
     Dosage: 4 TABLET
     Route: 048
  2. CRIZOTINIB [Concomitant]
     Active Substance: CRIZOTINIB
  3. ZOLEDRONIC ACID [Concomitant]
     Active Substance: ZOLEDRONIC ACID
  4. CALCIUM [Concomitant]
     Active Substance: CALCIUM

REACTIONS (3)
  - Dizziness [Unknown]
  - Constipation [Unknown]
  - Visual impairment [Unknown]
